FAERS Safety Report 8167285-X (Version None)
Quarter: 2012Q1

REPORT INFORMATION
  Report Type: 
  Country: None (occurrence: None)
  Receive Date: 20120227
  Receipt Date: 20120218
  Transmission Date: 20120608
  Serious: Yes (Other)
  Sender: FDA-Public Use
  Company Number: US-PFIZER INC-2012045770

PATIENT
  Sex: Female

DRUGS (16)
  1. ACETYLSALICYLIC ACID [Concomitant]
     Dosage: 81 MG, 1X/DAY
  2. AMLODIPINE BESILATE [Concomitant]
     Indication: HYPERTENSION
     Dosage: 5 MG, TWICE/DAY
  3. LASIX [Concomitant]
     Indication: HYPERTENSION
     Dosage: 40 MG, (1 TAB IN AM BEFORE MEALS)
  4. ASCORBIC ACID [Concomitant]
     Dosage: 500 MG, (1 TAB IN AM AFTER MEALS)
  5. CLONAZEPAM [Concomitant]
     Indication: RESTLESS LEGS SYNDROME
     Dosage: 1 MG, (AT BEDTIME)
  6. LABETALOL HYDROCHLORIDE [Concomitant]
     Indication: HYPERTENSION
     Dosage: 200 MG, (2 TAB IN AM AND PM BEFORE MEALS)
  7. COENZYME Q10 [Concomitant]
     Dosage: 100 MG, (1 TAB DAILY)
  8. MULTI-VITAMINS [Concomitant]
     Dosage: UNK (1 TAB IN PM AFTER MEALS)
  9. PREDNISONE [Concomitant]
     Dosage: 20 MG, (TAKE 3 TABS AT ONCE DAILY)
     Dates: start: 20120111, end: 20120115
  10. CALCIUM/MINERALS/VITAMIN D [Concomitant]
     Dosage: 600 MG, 2X/DAY
  11. POTASSIUM CHLORIDE [Concomitant]
     Dosage: 20 MEQ, (1 TAB IN AM WITH MEALS)
  12. SIMVASTATIN [Concomitant]
     Dosage: 10 MG, (1 TAB AT BEDTIME)
     Dates: start: 20090603
  13. LYRICA [Suspect]
     Indication: SCIATICA
     Dosage: 50 MG, 2X/DAY (1 TAB IN AM AND PM)
     Route: 048
  14. OMEGA 3 PLUS D3 FISH OIL [Concomitant]
     Dosage: UNK (2 TAB DAILY)
  15. TYLENOL-500 [Concomitant]
     Indication: ARTHRITIS
     Dosage: 500 MG, 2X/DAY, AS NEEDED
  16. MELOXICAM [Concomitant]
     Indication: ARTHRALGIA
     Dosage: 7.5 MG, 2X/DAY (1 TAB)
     Route: 048

REACTIONS (6)
  - SCIATICA [None]
  - RESTLESS LEGS SYNDROME [None]
  - HYPERTENSION [None]
  - LIP SWELLING [None]
  - OEDEMA MOUTH [None]
  - ARTHRALGIA [None]
